FAERS Safety Report 25793580 (Version 3)
Quarter: 2025Q4

REPORT INFORMATION
  Report Type: Report from Study
  Country: US (occurrence: US)
  Receive Date: 20250912
  Receipt Date: 20251030
  Transmission Date: 20260117
  Serious: Yes (Hospitalization)
  Sender: ABBVIE
  Company Number: US-ABBVIE-6449835

PATIENT
  Age: 65 Year
  Sex: Male

DRUGS (4)
  1. VENCLEXTA [Suspect]
     Active Substance: VENETOCLAX
     Indication: Myelodysplastic syndrome
     Dosage: FORM STRENGTH 100 MG
     Route: 048
     Dates: start: 20250225
  2. INQOVI [Suspect]
     Active Substance: CEDAZURIDINE\DECITABINE
     Indication: Myelodysplastic syndrome
     Dosage: LAST ADMIN DATE 2025, DECITABINE 35 MG + CEDAZURIDINE 100 MG
     Route: 048
     Dates: start: 20250225
  3. INQOVI [Suspect]
     Active Substance: CEDAZURIDINE\DECITABINE
     Indication: Myelodysplastic syndrome
     Dosage: DECITABINE 35 MG + CEDAZURIDINE 100 MG
     Route: 048
  4. INQOVI [Suspect]
     Active Substance: CEDAZURIDINE\DECITABINE
     Indication: Myelodysplastic syndrome
     Dosage: DECITABINE 35 MG + CEDAZURIDINE 100 MG
     Route: 048

REACTIONS (9)
  - Pharyngitis [Unknown]
  - Pyrexia [Unknown]
  - Full blood count decreased [Unknown]
  - Platelet count decreased [Unknown]
  - Pruritus [Unknown]
  - Rash [Unknown]
  - Bone pain [Recovered/Resolved]
  - Myalgia [Recovered/Resolved]
  - Inappropriate schedule of product administration [Unknown]

NARRATIVE: CASE EVENT DATE: 20250101
